FAERS Safety Report 16353255 (Version 1)
Quarter: 2019Q3

REPORT INFORMATION
  Report Type: Spontaneous
  Country: GB (occurrence: GB)
  Receive Date: 20190523
  Receipt Date: 20190523
  Transmission Date: 20191004
  Serious: No
  Sender: FDA-Public Use
  Company Number: None

PATIENT
  Age: 6 Year
  Sex: Female

DRUGS (3)
  1. SALBUTAMOL [Concomitant]
     Active Substance: ALBUTEROL
  2. SERETIDE [Concomitant]
     Active Substance: FLUTICASONE PROPIONATE\SALMETEROL XINAFOATE
  3. MONTELUKAST [Suspect]
     Active Substance: MONTELUKAST SODIUM
     Indication: ASTHMA
     Dates: start: 20170509, end: 20190102

REACTIONS (9)
  - Nightmare [None]
  - Crying [None]
  - Sleep terror [None]
  - Morbid thoughts [None]
  - Anxiety [None]
  - Psychiatric symptom [None]
  - Autophobia [None]
  - Personality change [None]
  - Screaming [None]

NARRATIVE: CASE EVENT DATE: 20190102
